FAERS Safety Report 25745888 (Version 1)
Quarter: 2025Q3

REPORT INFORMATION
  Report Type: Spontaneous
  Country: JP (occurrence: JP)
  Receive Date: 20250901
  Receipt Date: 20250901
  Transmission Date: 20251021
  Serious: Yes (Hospitalization)
  Sender: MACLEODS
  Company Number: JP-MLMSERVICE-20250813-PI612504-00106-1

PATIENT

DRUGS (1)
  1. CLOPIDOGREL [Suspect]
     Active Substance: CLOPIDOGREL BISULFATE
     Indication: Cerebral infarction
     Route: 065

REACTIONS (3)
  - Retroperitoneal haematoma [Unknown]
  - Cerebral infarction [Unknown]
  - Haematoma muscle [Unknown]
